FAERS Safety Report 5264856-5 (Version None)
Quarter: 2007Q1

REPORT INFORMATION
  Report Type: 
  Country: None (occurrence: None)
  Receive Date: 20070314
  Receipt Date: 20070313
  Transmission Date: 20070707
  Serious: Yes (Disabling)
  Sender: FDA-Public Use
  Company Number: 001#3#2007-00188

PATIENT
  Age: 44 Year
  Sex: Female

DRUGS (2)
  1. NARAMIG [Suspect]
     Dosage: 1TAB PER DAY
     Route: 048
  2. ACETAMINOPHEN [Concomitant]
     Route: 065

REACTIONS (2)
  - SUDDEN HEARING LOSS [None]
  - TINNITUS [None]
